FAERS Safety Report 7485712-8 (Version None)
Quarter: 2011Q2

REPORT INFORMATION
  Report Type: 
  Country: None (occurrence: None)
  Receive Date: 20110517
  Receipt Date: 20110509
  Transmission Date: 20111010
  Serious: Yes (Life-Threatening, Hospitalization, Other)
  Sender: FDA-Public Use
  Company Number: US-MERCK-1001USA03689

PATIENT
  Age: 69 Year
  Sex: Male
  Weight: 87 kg

DRUGS (9)
  1. DIURETIC (UNSPECIFIED) [Concomitant]
     Route: 065
  2. JANUVIA [Suspect]
     Indication: TYPE 2 DIABETES MELLITUS
     Route: 048
     Dates: start: 20090404, end: 20090411
  3. REMERON [Concomitant]
     Route: 065
  4. ASPIRIN [Concomitant]
     Route: 065
  5. ATACAND [Concomitant]
     Route: 065
  6. JANUVIA [Suspect]
     Route: 048
     Dates: start: 20090801, end: 20100101
  7. JANUVIA [Suspect]
     Route: 048
     Dates: start: 20090401, end: 20090801
  8. HYDROCHLOROTHIAZIDE [Concomitant]
     Route: 065
  9. METFORMIN [Concomitant]
     Route: 065

REACTIONS (7)
  - ABDOMINAL PAIN UPPER [None]
  - RHINORRHOEA [None]
  - ANXIETY [None]
  - EPIGLOTTITIS [None]
  - ANGIOEDEMA [None]
  - DIARRHOEA [None]
  - HAEMATURIA [None]
